FAERS Safety Report 16415874 (Version 5)
Quarter: 2019Q3

REPORT INFORMATION
  Report Type: Spontaneous
  Country: US (occurrence: US)
  Receive Date: 20190611
  Receipt Date: 20190703
  Transmission Date: 20191004
  Serious: Yes (Hospitalization)
  Sender: FDA-Public Use
  Company Number: US-ACTELION-A-NJ2019-190786

PATIENT
  Age: 67 Year
  Sex: Female
  Weight: 72.56 kg

DRUGS (4)
  1. OPSUMIT [Suspect]
     Active Substance: MACITENTAN
     Indication: PULMONARY HYPERTENSION
     Dosage: 10 MG, OD
     Route: 048
  2. UPTRAVI [Suspect]
     Active Substance: SELEXIPAG
     Indication: PULMONARY HYPERTENSION
     Dosage: 1600 MCG, BID
     Route: 048
     Dates: end: 20190608
  3. REMODULIN [Concomitant]
     Active Substance: TREPROSTINIL
  4. REVATIO [Concomitant]
     Active Substance: SILDENAFIL CITRATE
     Dosage: UNK
     Dates: start: 20190606

REACTIONS (13)
  - Catheterisation cardiac [Unknown]
  - Mineral supplementation [Unknown]
  - Catheter site pain [Unknown]
  - Pulmonary hypertension [Unknown]
  - Gastrointestinal disorder [Unknown]
  - Decreased appetite [Recovering/Resolving]
  - Diarrhoea [Unknown]
  - Taste disorder [Recovering/Resolving]
  - Therapy change [Unknown]
  - Blood count abnormal [Unknown]
  - Blood iron decreased [Unknown]
  - Disease progression [Unknown]
  - Weight decreased [Unknown]

NARRATIVE: CASE EVENT DATE: 20190606
